FAERS Safety Report 9734071 (Version 1)
Quarter: 2013Q4

REPORT INFORMATION
  Report Type: Spontaneous
  Country: CA (occurrence: CA)
  Receive Date: 20131205
  Receipt Date: 20131205
  Transmission Date: 20140711
  Serious: Yes (Hospitalization)
  Sender: FDA-Public Use
  Company Number: CA-GLAXOSMITHKLINE-A1048589A

PATIENT
  Age: 51 Year
  Sex: Female

DRUGS (12)
  1. BENLYSTA [Suspect]
     Indication: SYSTEMIC LUPUS ERYTHEMATOSUS
     Dosage: 885MG SEE DOSAGE TEXT
     Route: 042
     Dates: start: 201302
  2. ZOPICLONE [Concomitant]
  3. GABAPENTIN [Concomitant]
  4. MORPHINE SLOW RELEASE [Concomitant]
     Dosage: 1TAB TWICE PER DAY
  5. NEXIUM [Concomitant]
  6. MS IR [Concomitant]
  7. ANDRIOL [Concomitant]
     Dosage: 40MG TWICE PER DAY
  8. PROMETRIUM [Concomitant]
     Dosage: 100MG PER DAY
  9. ALEVE [Concomitant]
  10. PREDNISONE [Concomitant]
     Dosage: 5MG PER DAY
  11. SYNTHROID [Concomitant]
     Dosage: .05MG PER DAY
  12. HYDROXYCHLOROQUINE [Concomitant]
     Dosage: 1TAB TWICE PER DAY

REACTIONS (5)
  - Arthralgia [Unknown]
  - Joint swelling [Unknown]
  - Arthritis [Unknown]
  - Surgery [Unknown]
  - Arthritis [Recovered/Resolved]
